FAERS Safety Report 4532272-7 (Version None)
Quarter: 2004Q4

REPORT INFORMATION
  Report Type: 
  Country: None (occurrence: None)
  Receive Date: 20041217
  Receipt Date: 20041209
  Transmission Date: 20050328
  Serious: Yes (Hospitalization)
  Sender: FDA-Public Use
  Company Number: 235964K04USA

PATIENT
  Age: 59 Year
  Sex: Female

DRUGS (1)
  1. REBIF [Suspect]
     Indication: MULTIPLE SCLEROSIS

REACTIONS (4)
  - BLADDER DISORDER [None]
  - BLOOD URINE PRESENT [None]
  - HYPERSOMNIA [None]
  - MEDICATION ERROR [None]
